FAERS Safety Report 10412582 (Version 1)
Quarter: 2014Q2

REPORT INFORMATION
  Report Type: Spontaneous
  Country: US (occurrence: None)
  Receive Date: 20140604
  Receipt Date: 20140604
  Transmission Date: 20141212
  Serious: Yes (Other)
  Sender: FDA-Public Use
  Company Number: 20090825CINRY1099

PATIENT
  Age: 29 Year
  Sex: Female

DRUGS (2)
  1. CINRYZE [Suspect]
     Indication: HEREDITARY ANGIOEDEMA
     Dosage: 1000 UNIT
     Route: 042
     Dates: start: 200903
  2. CINRYZE [Suspect]
     Indication: PROPHYLAXIS
     Dosage: 1000 UNIT
     Route: 042
     Dates: start: 200903

REACTIONS (3)
  - Vomiting [None]
  - Hereditary angioedema [None]
  - Peripheral swelling [None]
